FAERS Safety Report 24642163 (Version 2)
Quarter: 2024Q4

REPORT INFORMATION
  Report Type: Report from Study
  Country: KR (occurrence: KR)
  Receive Date: 20241120
  Receipt Date: 20241129
  Transmission Date: 20250114
  Serious: Yes (Other)
  Sender: EMD SERONO INC
  Company Number: KR-Merck Healthcare KGaA-2024061019

PATIENT
  Age: 46 Year
  Sex: Female

DRUGS (2)
  1. MAVENCLAD [Suspect]
     Active Substance: CLADRIBINE
     Indication: Multiple sclerosis
     Dosage: YEAR ONE THERAPY
  2. MAVENCLAD [Suspect]
     Active Substance: CLADRIBINE
     Dosage: YEAR TWO THERAPY

REACTIONS (3)
  - Intestinal haemorrhage [Recovering/Resolving]
  - Haematochezia [Recovering/Resolving]
  - Fluid intake reduced [Recovering/Resolving]

NARRATIVE: CASE EVENT DATE: 20241112
